FAERS Safety Report 5099904-9 (Version None)
Quarter: 2006Q3

REPORT INFORMATION
  Report Type: 
  Country: None (occurrence: None)
  Receive Date: 20060906
  Receipt Date: 20060906
  Transmission Date: 20061208
  Serious: Yes (Hospitalization)
  Sender: FDA-Public Use
  Company Number: None

PATIENT
  Age: 69 Year
  Sex: Male
  Weight: 98.9 kg

DRUGS (2)
  1. DOXAZOSIN MESYLATE [Suspect]
     Indication: BENIGN PROSTATIC HYPERPLASIA
     Dosage: 8MG  HS PO
     Route: 048
  2. DOXAZOSIN MESYLATE [Suspect]
     Indication: HYPERTENSION
     Dosage: 8MG  HS PO
     Route: 048

REACTIONS (4)
  - DEHYDRATION [None]
  - DIZZINESS [None]
  - ORTHOSTATIC HYPOTENSION [None]
  - THYROID DISORDER [None]
